FAERS Safety Report 5270826-3 (Version None)
Quarter: 2007Q1

REPORT INFORMATION
  Report Type: 
  Country: None (occurrence: None)
  Receive Date: 20070319
  Receipt Date: 20070319
  Transmission Date: 20070707
  Serious: Yes (Other)
  Sender: FDA-Public Use
  Company Number: None

PATIENT
  Age: 53 Year
  Sex: Male
  Weight: 82.1011 kg

DRUGS (2)
  1. TOPROL-XL [Suspect]
     Indication: HYPERTENSION
     Dosage: 100 MG DAILY
     Dates: start: 20050101, end: 20070101
  2. DIOVAN [Suspect]
     Indication: HYPERTENSION
     Dosage: 40 MG DAILY
     Dates: start: 20050101, end: 20070101

REACTIONS (19)
  - ABDOMINAL DISTENSION [None]
  - ACTIVITIES OF DAILY LIVING IMPAIRED [None]
  - ALOPECIA [None]
  - AMNESIA [None]
  - DEAFNESS [None]
  - DRY EYE [None]
  - FATIGUE [None]
  - FLATULENCE [None]
  - IMPAIRED WORK ABILITY [None]
  - MUSCLE SPASMS [None]
  - MYALGIA [None]
  - PAIN [None]
  - PALPITATIONS [None]
  - PANIC ATTACK [None]
  - PHOTOPHOBIA [None]
  - SOMNOLENCE [None]
  - TINNITUS [None]
  - VISION BLURRED [None]
  - WEIGHT INCREASED [None]
